FAERS Safety Report 6997096-X (Version None)
Quarter: 2010Q3

REPORT INFORMATION
  Report Type: 
  Country: None (occurrence: None)
  Receive Date: 20100918
  Receipt Date: 20090910
  Transmission Date: 20110219
  Serious: No
  Sender: FDA-Public Use
  Company Number: US-WYE-H10928809

PATIENT
  Sex: Female

DRUGS (6)
  1. PRISTIQ [Suspect]
     Indication: DEPRESSION
     Route: 048
     Dates: start: 20090710
  2. TRIAMTERENE [Concomitant]
  3. LIPITOR [Concomitant]
  4. NORVASC [Concomitant]
  5. TOPAMAX [Concomitant]
  6. LAMOTRIGINE [Concomitant]

REACTIONS (4)
  - HYPOAESTHESIA [None]
  - PARAESTHESIA [None]
  - PERIPHERAL COLDNESS [None]
  - VISION BLURRED [None]
